FAERS Safety Report 7130549-2 (Version None)
Quarter: 2010Q4

REPORT INFORMATION
  Report Type: 
  Country: None (occurrence: None)
  Receive Date: 20101201
  Receipt Date: 20101126
  Transmission Date: 20110411
  Serious: Yes (Life-Threatening)
  Sender: FDA-Public Use
  Company Number: PHHY2010BE80403

PATIENT
  Sex: Female

DRUGS (1)
  1. CATAFLAM [Suspect]
     Dosage: 50 MG, UNK
     Route: 048

REACTIONS (8)
  - ANAPHYLACTOID REACTION [None]
  - APPARENT DEATH [None]
  - ASPHYXIA [None]
  - DYSPNOEA [None]
  - GENERALISED ERYTHEMA [None]
  - PRURITUS GENERALISED [None]
  - SWELLING FACE [None]
  - SWOLLEN TONGUE [None]
